FAERS Safety Report 4391050-2 (Version None)
Quarter: 2004Q2

REPORT INFORMATION
  Report Type: 
  Country: None (occurrence: None)
  Receive Date: 20040621
  Receipt Date: 20031027
  Transmission Date: 20050107
  Serious: Yes (Death)
  Sender: FDA-Public Use
  Company Number: USA-2003-0010481

PATIENT
  Age: 42 Year
  Sex: Female
  Weight: 91.6 kg

DRUGS (18)
  1. OXYCONTIN [Suspect]
  2. ETHANOL (ETHANOL) [Suspect]
  3. ELAVIL [Suspect]
  4. NORTRIPTYLINE HCL [Suspect]
  5. PAXIL [Suspect]
  6. NEOMYCIN [Concomitant]
  7. TEGRETOL [Concomitant]
  8. NEURONTIN [Concomitant]
  9. ACIPHEX [Concomitant]
  10. ESTRATEST [Concomitant]
  11. BELLERGAL-S [Concomitant]
  12. PROPOXYPHENE [Concomitant]
  13. ATENOLOL [Concomitant]
  14. IMITREX ^NERENEX^ [Concomitant]
  15. LORAZEPAM [Concomitant]
  16. REGLAN [Concomitant]
  17. TRIMETHOBENZAMIDE [Concomitant]
  18. HYDROXYZINE [Concomitant]

REACTIONS (2)
  - ACCIDENTAL OVERDOSE [None]
  - MULTIPLE DRUG OVERDOSE [None]
